FAERS Safety Report 21615638 (Version 1)
Quarter: 2022Q4

REPORT INFORMATION
  Report Type: Spontaneous
  Country: CO (occurrence: None)
  Receive Date: 20221118
  Receipt Date: 20221118
  Transmission Date: 20230113
  Serious: Yes (Other)
  Sender: FDA-Public Use
  Company Number: 2022A382189

PATIENT

DRUGS (3)
  1. OSIMERTINIB [Suspect]
     Active Substance: OSIMERTINIB
     Indication: Lung neoplasm malignant
     Dosage: UNKNOWN UNKNOWN
     Route: 048
  2. PACLITAXEL [Concomitant]
     Active Substance: PACLITAXEL
  3. CARBO [Concomitant]

REACTIONS (1)
  - Malignant neoplasm progression [Unknown]
